FAERS Safety Report 6429489-3 (Version None)
Quarter: 2009Q4

REPORT INFORMATION
  Report Type: 
  Country: None (occurrence: None)
  Receive Date: 20091105
  Receipt Date: 20091029
  Transmission Date: 20100525
  Serious: Yes (Hospitalization)
  Sender: FDA-Public Use
  Company Number: AU-ABBOTT-09P-008-0605445-00

PATIENT
  Age: 51 Year
  Sex: Female

DRUGS (1)
  1. TARKA [Suspect]
     Indication: ESSENTIAL HYPERTENSION
     Dosage: ONCE
     Route: 048
     Dates: start: 20090526, end: 20090605

REACTIONS (5)
  - HEADACHE [None]
  - HYPERHIDROSIS [None]
  - OROPHARYNGEAL PAIN [None]
  - PYREXIA [None]
  - RASH MACULO-PAPULAR [None]
